FAERS Safety Report 24828846 (Version 3)
Quarter: 2025Q1

REPORT INFORMATION
  Report Type: Report from Study
  Country: US (occurrence: US)
  Receive Date: 20250110
  Receipt Date: 20250213
  Transmission Date: 20250409
  Serious: Yes (Hospitalization, Other)
  Sender: ACADIA PHARMACEUTICALS
  Company Number: US-ACADIA PHARMACEUTICALS INC.-ACA-2025-PIM-000244

PATIENT

DRUGS (2)
  1. NUPLAZID [Suspect]
     Active Substance: PIMAVANSERIN TARTRATE
     Indication: Parkinson^s disease psychosis
     Dosage: 34 MILLIGRAM, QD
     Route: 048
  2. NUPLAZID [Suspect]
     Active Substance: PIMAVANSERIN TARTRATE
     Indication: Parkinson^s disease
     Dosage: 10 MILLIGRAM, QD
     Route: 048

REACTIONS (7)
  - Hallucination, visual [Recovered/Resolved]
  - Hallucination [Unknown]
  - Intestinal obstruction [Recovered/Resolved]
  - Depersonalisation/derealisation disorder [Recovered/Resolved]
  - Confusional state [Recovered/Resolved]
  - Product use issue [Unknown]
  - Intentional dose omission [Recovered/Resolved]
